APPROVED DRUG PRODUCT: ZEMPLAR
Active Ingredient: PARICALCITOL
Strength: 1MCG
Dosage Form/Route: CAPSULE;ORAL
Application: N021606 | Product #001
Applicant: ABBVIE INC
Approved: May 26, 2005 | RLD: Yes | RS: No | Type: DISCN